FAERS Safety Report 4817769-4 (Version None)
Quarter: 2005Q4

REPORT INFORMATION
  Report Type: 
  Country: None (occurrence: None)
  Receive Date: 20051102
  Receipt Date: 20050916
  Transmission Date: 20060501
  Serious: Yes (Other)
  Sender: FDA-Public Use
  Company Number: US-BOEHRINGER INGELHEIM PHARMACEUTICALS, INC.-2005-BP-16511BP

PATIENT
  Age: 78 Year
  Sex: Male

DRUGS (8)
  1. CATAPRES-TTS-1 [Suspect]
     Route: 062
  2. DURAGESIC-100 [Concomitant]
     Route: 062
  3. NORVASC [Concomitant]
  4. LASIX [Concomitant]
  5. IMDUR [Concomitant]
  6. LEVOTHYROXINE [Concomitant]
  7. DOXAZOSIN [Concomitant]
  8. PROTONIX [Concomitant]

REACTIONS (5)
  - BLOOD PRESSURE DECREASED [None]
  - MENTAL IMPAIRMENT [None]
  - PYREXIA [None]
  - SEPSIS [None]
  - UNRESPONSIVE TO VERBAL STIMULI [None]
